FAERS Safety Report 24340289 (Version 3)
Quarter: 2025Q4

REPORT INFORMATION
  Report Type: Report from Study
  Country: US (occurrence: US)
  Receive Date: 20240919
  Receipt Date: 20251222
  Transmission Date: 20260118
  Serious: No
  Sender: MERCK SHARP & DOHME LLC
  Company Number: None

PATIENT
  Age: 75 Year
  Sex: Female
  Weight: 72.109 kg

DRUGS (16)
  1. WINREVAIR [Suspect]
     Active Substance: SOTATERCEPT-CSRK
     Indication: Pulmonary arterial hypertension
     Route: 058
     Dates: start: 20251130
  2. WINREVAIR [Suspect]
     Active Substance: SOTATERCEPT-CSRK
  3. WINREVAIR [Suspect]
     Active Substance: SOTATERCEPT-CSRK
  4. WINREVAIR [Suspect]
     Active Substance: SOTATERCEPT-CSRK
  5. WINREVAIR [Suspect]
     Active Substance: SOTATERCEPT-CSRK
     Indication: Pulmonary arterial hypertension
     Dosage: 0.5 MILLILITER (22.5 MG)
     Route: 058
     Dates: start: 20240610, end: 20240610
  6. WINREVAIR [Suspect]
     Active Substance: SOTATERCEPT-CSRK
  7. WINREVAIR [Suspect]
     Active Substance: SOTATERCEPT-CSRK
  8. WINREVAIR [Suspect]
     Active Substance: SOTATERCEPT-CSRK
  9. SILDENAFIL CITRATE [Concomitant]
     Active Substance: SILDENAFIL CITRATE
     Indication: Pulmonary arterial hypertension
     Dosage: DOSE DESCRIPTION : 20 MILLIGRAM, TID?DAILY DOSE : 60 MILLIGRAM
     Route: 048
     Dates: start: 20200915
  10. REMODULIN [Concomitant]
     Active Substance: TREPROSTINIL
     Indication: Pulmonary arterial hypertension
     Dosage: DOSE DESCRIPTION : 60.6 MG/KG/MIN; 76 KG, 8.6 MILLIGRAM?DAILY DOSE : 0.86 MILLIGRAM?CONCENTRATION...
     Route: 058
     Dates: start: 20181031
  11. FUROSEMIDE [Concomitant]
     Active Substance: FUROSEMIDE
     Indication: Polyuria
     Dosage: DOSE DESCRIPTION : 20 MILLIGRAM, QD?DAILY DOSE : 20 MILLIGRAM?CONCENTRATION: 20 MILLIGRAM
     Route: 048
     Dates: start: 20200621
  12. SPIRONOLACTONE [Concomitant]
     Active Substance: SPIRONOLACTONE
     Indication: Polyuria
     Dosage: DOSE DESCRIPTION : 50 MILLIGRAM, QD?DAILY DOSE : 50 MILLIGRAM?CONCENTRATION: 50 MILLIGRAM
     Route: 048
     Dates: start: 20200824
  13. WARFARIN SODIUM [Concomitant]
     Active Substance: WARFARIN SODIUM
  14. multivitamins tablet [Concomitant]
  15. OXYGEN [Concomitant]
     Active Substance: OXYGEN
  16. CYCLOBENZAPRINE HYDROCHLORIDE [Concomitant]
     Active Substance: CYCLOBENZAPRINE HYDROCHLORIDE

REACTIONS (6)
  - Nausea [Recovered/Resolved]
  - Device leakage [Unknown]
  - Dizziness [Recovered/Resolved]
  - Device physical property issue [Unknown]
  - Headache [Recovered/Resolved]
  - Product dose omission issue [Unknown]

NARRATIVE: CASE EVENT DATE: 20240610
